FAERS Safety Report 5168078-8 (Version None)
Quarter: 2006Q4

REPORT INFORMATION
  Report Type: 
  Country: None (occurrence: None)
  Receive Date: 20061208
  Receipt Date: 20060915
  Transmission Date: 20070319
  Serious: No
  Sender: FDA-Public Use
  Company Number: US-GLAXOSMITHKLINE-A0620342A

PATIENT
  Age: 40 Year
  Sex: Female

DRUGS (9)
  1. AVANDAMET [Suspect]
     Route: 048
  2. PREVACID [Concomitant]
  3. RISPERDAL [Concomitant]
  4. PAXIL [Concomitant]
  5. VYTORIN [Concomitant]
  6. FLEXERIL [Concomitant]
  7. INDERAL [Concomitant]
  8. SLO-BID [Concomitant]
  9. ADVAIR DISKUS 100/50 [Concomitant]

REACTIONS (4)
  - DYSPHAGIA [None]
  - MEDICATION RESIDUE [None]
  - PHARMACEUTICAL PRODUCT COMPLAINT [None]
  - VOMITING [None]
